FAERS Safety Report 18626274 (Version 2)
Quarter: 2021Q1

REPORT INFORMATION
  Report Type: Spontaneous
  Country: MY (occurrence: MY)
  Receive Date: 20201217
  Receipt Date: 20210304
  Transmission Date: 20210419
  Serious: Yes (Hospitalization)
  Sender: FDA-Public Use
  Company Number: MY-ROCHE-2734145

PATIENT
  Age: 85 Year
  Sex: Male

DRUGS (5)
  1. METOCLOPRAMIDE. [Concomitant]
     Active Substance: METOCLOPRAMIDE
     Indication: VOMITING
  2. METALYSE [Suspect]
     Active Substance: TENECTEPLASE
     Indication: MYOCARDIAL INFARCTION
     Dosage: 1
     Route: 042
     Dates: start: 20191226, end: 20191226
  3. CERUVIN [Concomitant]
     Active Substance: CLOPIDOGREL BISULFATE
     Indication: EMBOLISM
     Dosage: 75MG OD (ONCE DAILY)
     Route: 048
     Dates: start: 20191226, end: 20191226
  4. METOCLOPRAMIDE. [Concomitant]
     Active Substance: METOCLOPRAMIDE
     Indication: NAUSEA
     Dosage: 10MG STAT VIA INTRAVENOUS BOLUS
     Route: 042
     Dates: start: 20191226, end: 20191226
  5. MORPHINE [Concomitant]
     Active Substance: MORPHINE
     Indication: DRUG THERAPY
     Dosage: 2MG STAT FREQUENCY: 1, FREQUENCY UNIT: 809
     Route: 042
     Dates: start: 20191226, end: 20191226

REACTIONS (5)
  - Laryngeal oedema [Recovering/Resolving]
  - Tongue pruritus [Recovering/Resolving]
  - Angioedema [Recovering/Resolving]
  - Upper airway obstruction [Recovering/Resolving]
  - Dysphagia [Recovering/Resolving]

NARRATIVE: CASE EVENT DATE: 20191227
